FAERS Safety Report 4433143-7 (Version None)
Quarter: 2004Q3

REPORT INFORMATION
  Report Type: 
  Country: None (occurrence: None)
  Receive Date: 20040823
  Receipt Date: 20040809
  Transmission Date: 20050211
  Serious: Yes (Hospitalization)
  Sender: FDA-Public Use
  Company Number: 200456

PATIENT
  Age: 54 Year
  Sex: Female

DRUGS (9)
  1. AVONEX [Suspect]
     Indication: MULTIPLE SCLEROSIS
     Dosage: 30 MCG QW IM
     Route: 030
     Dates: start: 20011029
  2. OXYCONTIN [Concomitant]
  3. METHADONE HCL [Concomitant]
  4. BEXTRA [Concomitant]
  5. PAXIL [Concomitant]
  6. PROVIGIL [Concomitant]
  7. DANTRIUM [Concomitant]
  8. NEXIUM [Concomitant]
  9. ACCUPRIL [Concomitant]

REACTIONS (7)
  - DEHYDRATION [None]
  - DIARRHOEA [None]
  - NAUSEA [None]
  - URINARY BLADDER HAEMORRHAGE [None]
  - VIRAL INFECTION [None]
  - VOMITING [None]
  - WEIGHT DECREASED [None]
